FAERS Safety Report 8274883-1 (Version None)
Quarter: 2012Q2

REPORT INFORMATION
  Report Type: 
  Country: None (occurrence: None)
  Receive Date: 20120411
  Receipt Date: 20120329
  Transmission Date: 20120825
  Serious: No
  Sender: FDA-Public Use
  Company Number: US-B.I. PHARMACEUTICALS,INC./RIDGEFIELD-2012-BP-05943BP

PATIENT
  Sex: Female

DRUGS (8)
  1. FISH OIL [Concomitant]
     Indication: SUPPLEMENTATION THERAPY
  2. COQ10 [Concomitant]
     Indication: SUPPLEMENTATION THERAPY
  3. TOPROL-XL [Concomitant]
     Indication: HYPERTENSION
     Dosage: 100 MG
     Route: 048
  4. MAXZIDE [Concomitant]
     Indication: HYPERTENSION
     Dosage: 25 MG
     Route: 048
  5. PROBIOTIC [Concomitant]
     Indication: SUPPLEMENTATION THERAPY
  6. NAPROXEN (ALEVE) [Suspect]
     Indication: PAIN
     Route: 048
     Dates: start: 20120328, end: 20120328
  7. PRADAXA [Suspect]
     Indication: ATRIAL FIBRILLATION
     Dosage: 300 MG
     Route: 048
     Dates: start: 20120101
  8. CRESTOR [Concomitant]
     Indication: BLOOD CHOLESTEROL INCREASED
     Dosage: 5 MG
     Route: 048

REACTIONS (2)
  - GINGIVAL BLEEDING [None]
  - INCREASED UPPER AIRWAY SECRETION [None]
